FAERS Safety Report 21267867 (Version 1)
Quarter: 2022Q3

REPORT INFORMATION
  Report Type: Spontaneous
  Country: US (occurrence: US)
  Receive Date: 20220829
  Receipt Date: 20220829
  Transmission Date: 20221027
  Serious: No
  Sender: FDA-Public Use
  Company Number: US-GALDERMA-US2021016058

PATIENT

DRUGS (4)
  1. EPIDUO FORTE [Suspect]
     Active Substance: ADAPALENE\BENZOYL PEROXIDE
     Indication: Acne
     Dosage: 1 DOSAGE FORM, QD
     Route: 061
  2. EPIDUO FORTE [Suspect]
     Active Substance: ADAPALENE\BENZOYL PEROXIDE
     Dosage: 1 DOSAGE FORM, BID
     Route: 061
  3. CETAPHIL PRO OIL ABSORBING SPF 30 [Suspect]
     Active Substance: AVOBENZONE\OCTISALATE\OCTOCRYLENE
     Indication: Dry skin prophylaxis
     Dosage: 1 DOSAGE FORM, UNKNOWN
     Route: 061
  4. COSMETICS [Suspect]
     Active Substance: COSMETICS
     Indication: Therapeutic skin care topical
     Dosage: 1 DOSAGE FORM, UNKNOWN
     Route: 061

REACTIONS (3)
  - Product dose omission issue [Recovered/Resolved]
  - Inappropriate schedule of product administration [Recovered/Resolved]
  - Overdose [Recovered/Resolved]
